FAERS Safety Report 16588968 (Version 7)
Quarter: 2019Q3

REPORT INFORMATION
  Report Type: Report from Study
  Country: None (occurrence: ES)
  Receive Date: 20190718
  Receipt Date: 20190905
  Transmission Date: 20191004
  Serious: Yes (Death, Hospitalization, Other)
  Sender: FDA-Public Use
  Company Number: ES-ABBVIE-19K-144-2857313-00

PATIENT
  Age: 67 Year
  Sex: Male
  Weight: 65 kg

DRUGS (1)
  1. DUODOPA [Suspect]
     Active Substance: CARBIDOPA\LEVODOPA
     Indication: PARKINSON^S DISEASE
     Route: 050
     Dates: start: 20170622, end: 20190821

REACTIONS (6)
  - Pancreatic neoplasm [Fatal]
  - Cholelithiasis [Recovering/Resolving]
  - Jaundice [Recovered/Resolved]
  - Biliary drainage [Unknown]
  - Pyrexia [Recovered/Resolved]
  - Duodenal obstruction [Unknown]

NARRATIVE: CASE EVENT DATE: 2019
